FAERS Safety Report 6050352-4 (Version None)
Quarter: 2009Q1

REPORT INFORMATION
  Report Type: 
  Country: None (occurrence: None)
  Receive Date: 20090121
  Receipt Date: 20090109
  Transmission Date: 20090719
  Serious: Yes (Other)
  Sender: FDA-Public Use
  Company Number: 1000001066

PATIENT
  Age: 78 Year
  Sex: Female
  Weight: 72.5755 kg

DRUGS (6)
  1. MEMANTINE HCL [Suspect]
     Indication: DEMENTIA ALZHEIMER'S TYPE
     Dosage: 20 MG (20 MG, 1 IN 1 D), ORAL
     Route: 048
  2. PANTOPRAZOLE SODIUM [Concomitant]
  3. HYDROCHLOROTHIAZIDE [Concomitant]
  4. TAMOXIFEN CITRATE [Concomitant]
  5. AMLODIPINE [Concomitant]
  6. ARICEPT [Concomitant]

REACTIONS (4)
  - DECUBITUS ULCER [None]
  - FALL [None]
  - PELVIC FRACTURE [None]
  - RASH [None]
